FAERS Safety Report 9163724 (Version 3)
Quarter: 2013Q4

REPORT INFORMATION
  Report Type: Report from Study
  Country: BR (occurrence: BR)
  Receive Date: 20130314
  Receipt Date: 20131008
  Transmission Date: 20140711
  Serious: Yes (Death, Hospitalization)
  Sender: FDA-Public Use
  Company Number: BR-ACTELION-A-CH2013-80367

PATIENT
  Age: 48 Year
  Sex: Female

DRUGS (5)
  1. TRACLEER [Suspect]
     Indication: ISCHAEMIC ULCER
     Dosage: 125 MG, BID
     Route: 048
     Dates: start: 200808, end: 20130906
  2. AZATHIOPRINE [Concomitant]
  3. OMEPRAZOLE [Concomitant]
  4. BROMOPRIDE [Concomitant]
  5. PENTOXIFYLLINE [Concomitant]

REACTIONS (7)
  - Respiratory failure [Fatal]
  - Scleroderma [Unknown]
  - Condition aggravated [Unknown]
  - Fatigue [Recovering/Resolving]
  - Dyspnoea [Recovering/Resolving]
  - Pneumonia [Recovering/Resolving]
  - Skin ulcer [Unknown]
